FAERS Safety Report 22599728 (Version 1)
Quarter: 2023Q2

REPORT INFORMATION
  Report Type: Spontaneous
  Country: GB (occurrence: GB)
  Receive Date: 20230614
  Receipt Date: 20230614
  Transmission Date: 20230722
  Serious: Yes (Other)
  Sender: FDA-Public Use
  Company Number: GB-MHRA-MED-202306031232236400-VJKNR

PATIENT
  Age: 29 Year
  Sex: Female
  Weight: 56 kg

DRUGS (1)
  1. DOXYCYCLINE [Suspect]
     Active Substance: DOXYCYCLINE
     Indication: Acne
     Dosage: 100 MILLIGRAM DAILY; 100MG ONCE A DAY ; THERAPY END DATE  : NASK
     Route: 065
     Dates: start: 20230522

REACTIONS (2)
  - Medication error [Unknown]
  - Bile output [Recovering/Resolving]

NARRATIVE: CASE EVENT DATE: 20230603
